FAERS Safety Report 13559405 (Version 1)
Quarter: 2017Q2

REPORT INFORMATION
  Report Type: Report from Study
  Country: None (occurrence: JP)
  Receive Date: 20170518
  Receipt Date: 20170518
  Transmission Date: 20170830
  Serious: Yes (Hospitalization)
  Sender: FDA-Public Use
  Company Number: JP-EISAI MEDICAL RESEARCH-EC-2017-027514

PATIENT
  Age: 83 Year
  Sex: Male
  Weight: 51 kg

DRUGS (11)
  1. AMLODIN OD [Concomitant]
     Active Substance: AMLODIPINE BESYLATE
  2. SUNBAZON [Concomitant]
  3. MAINTAT [Concomitant]
  4. SENNOSIDE [Concomitant]
     Active Substance: SENNOSIDES
  5. ENALAPRIL [Concomitant]
     Active Substance: ENALAPRIL
  6. LOXOPROFEN [Concomitant]
     Active Substance: LOXOPROFEN
  7. BROTIZOLAM OD [Concomitant]
  8. THYRADIN [Concomitant]
     Active Substance: LEVOTHYROXINE
  9. LENVATINIB [Suspect]
     Active Substance: LENVATINIB
     Indication: ANAPLASTIC THYROID CANCER
     Route: 048
     Dates: start: 20160715, end: 20161014
  10. SELBEX [Concomitant]
     Active Substance: TEPRENONE
  11. LANSOPRAZOLE OD [Concomitant]
     Active Substance: LANSOPRAZOLE

REACTIONS (1)
  - Loss of consciousness [Recovering/Resolving]

NARRATIVE: CASE EVENT DATE: 20161013
